FAERS Safety Report 7788128-X (Version None)
Quarter: 2011Q3

REPORT INFORMATION
  Report Type: 
  Country: None (occurrence: None)
  Receive Date: 20110929
  Receipt Date: 20110929
  Transmission Date: 20111222
  Serious: No
  Sender: FDA-Public Use
  Company Number: None

PATIENT
  Age: 49 Year
  Sex: Male
  Weight: 110.5 kg

DRUGS (1)
  1. SULFAMETHOXAZOLE AND TRIMETHOPRIM [Suspect]
     Indication: INFECTION
     Dosage: 2 TAB BID PO
     Route: 048
     Dates: start: 20110625, end: 20110704

REACTIONS (4)
  - DRUG ERUPTION [None]
  - PRURITUS [None]
  - RENAL FAILURE ACUTE [None]
  - URTICARIA [None]
